FAERS Safety Report 6559745-X (Version None)
Quarter: 2010Q1

REPORT INFORMATION
  Report Type: 
  Country: None (occurrence: None)
  Receive Date: 20100129
  Receipt Date: 20090914
  Transmission Date: 20100710
  Serious: No
  Sender: FDA-Public Use
  Company Number: US-ABBOTT-09P-163-0597047-00

PATIENT
  Sex: Female

DRUGS (1)
  1. HUMIRA [Suspect]
     Indication: RHEUMATOID ARTHRITIS
     Dosage: 40MG DAY 1
     Dates: start: 20080209

REACTIONS (3)
  - BURNING SENSATION [None]
  - HYPOAESTHESIA [None]
  - PARAESTHESIA [None]
